FAERS Safety Report 5129291-9 (Version None)
Quarter: 2006Q4

REPORT INFORMATION
  Report Type: 
  Country: None (occurrence: None)
  Receive Date: 20061011
  Receipt Date: 20060928
  Transmission Date: 20070319
  Serious: Yes (Death, Life-Threatening, Hospitalization)
  Sender: FDA-Public Use
  Company Number: 2006EU002116

PATIENT
  Age: 63 Year
  Sex: Male

DRUGS (2)
  1. FK506 (TACROLIMUS) CAPSULE [Suspect]
     Indication: LIVER TRANSPLANT
     Dosage: D
     Dates: start: 20050502
  2. CORTICOSTEROIDS () [Suspect]
     Indication: LIVER TRANSPLANT
     Dosage: D
     Dates: start: 20050502

REACTIONS (2)
  - MULTI-ORGAN DISORDER [None]
  - SEPTIC SHOCK [None]
